FAERS Safety Report 6077096-7 (Version None)
Quarter: 2009Q1

REPORT INFORMATION
  Report Type: 
  Country: None (occurrence: None)
  Receive Date: 20090213
  Receipt Date: 20090204
  Transmission Date: 20090719
  Serious: Yes (Disabling, Other)
  Sender: FDA-Public Use
  Company Number: PHHY2008CA09330

PATIENT
  Sex: Male
  Weight: 99.773 kg

DRUGS (5)
  1. ZOMETA [Suspect]
     Indication: PROSTATE CANCER
     Dosage: 4 MG/DAY
     Route: 042
     Dates: start: 20080909
  2. ZOMETA [Suspect]
     Indication: METASTASES TO BONE
  3. CASODEX [Concomitant]
  4. LEUPRON PED - SLOW RELEASE [Concomitant]
  5. ALTACE [Concomitant]

REACTIONS (6)
  - BLINDNESS [None]
  - EYE PAIN [None]
  - OCULAR HYPERAEMIA [None]
  - OPTIC ISCHAEMIC NEUROPATHY [None]
  - OSTEONECROSIS [None]
  - RASH [None]
